FAERS Safety Report 17837046 (Version 1)
Quarter: 2020Q2

REPORT INFORMATION
  Report Type: Spontaneous
  Country: US (occurrence: US)
  Receive Date: 20200529
  Receipt Date: 20200529
  Transmission Date: 20200714
  Serious: No
  Sender: FDA-Public Use
  Company Number: US-US WORLDMEDS, LLC-USW202005-000928

PATIENT
  Age: 45 Year
  Sex: Male

DRUGS (4)
  1. LUCEMYRA [Suspect]
     Active Substance: LOFEXIDINE
     Dates: end: 20200413
  2. LUCEMYRA [Suspect]
     Active Substance: LOFEXIDINE
  3. LUCEMYRA [Suspect]
     Active Substance: LOFEXIDINE
  4. LUCEMYRA [Suspect]
     Active Substance: LOFEXIDINE
     Indication: PRODUCT USED FOR UNKNOWN INDICATION
     Dates: start: 20200406

REACTIONS (9)
  - Blood pressure abnormal [Unknown]
  - Depression [Unknown]
  - Chills [Unknown]
  - Insomnia [Unknown]
  - Dyspnoea [Unknown]
  - Withdrawal syndrome [Unknown]
  - Anxiety [Unknown]
  - Dizziness [Unknown]
  - Drug ineffective [Unknown]

NARRATIVE: CASE EVENT DATE: 202004
